FAERS Safety Report 17907331 (Version 2)
Quarter: 2020Q2

REPORT INFORMATION
  Report Type: Spontaneous
  Country: US (occurrence: US)
  Receive Date: 20200617
  Receipt Date: 20200629
  Transmission Date: 20200714
  Serious: No
  Sender: FDA-Public Use
  Company Number: US-GW PHARMA-202006USGW02129

PATIENT

DRUGS (4)
  1. BRIVIACT [Concomitant]
     Active Substance: BRIVARACETAM
     Indication: PRODUCT USED FOR UNKNOWN INDICATION
     Dosage: UNKNOWN DOSE
     Route: 065
  2. EPIDIOLEX [Suspect]
     Active Substance: CANNABIDIOL
     Dosage: 150 MILLIGRAM, BID
     Route: 048
     Dates: start: 20200323
  3. EPIDIOLEX [Suspect]
     Active Substance: CANNABIDIOL
     Indication: LENNOX-GASTAUT SYNDROME
     Dosage: UNKNOWN DOSE
     Route: 048
     Dates: start: 201907
  4. BRIVIACT [Concomitant]
     Active Substance: BRIVARACETAM
     Dosage: 4 MILLILITER, BID (INCREASED DOSE)
     Route: 065
     Dates: start: 20200522

REACTIONS (3)
  - Sleep disorder [Unknown]
  - Terminal insomnia [Unknown]
  - Seizure [Unknown]

NARRATIVE: CASE EVENT DATE: 202005
